FAERS Safety Report 20770386 (Version 1)
Quarter: 2022Q2

REPORT INFORMATION
  Report Type: Spontaneous
  Country: BE (occurrence: BE)
  Receive Date: 20220429
  Receipt Date: 20220429
  Transmission Date: 20220721
  Serious: Yes (Death, Hospitalization)
  Sender: FDA-Public Use
  Company Number: BE-PFIZER INC-202200531961

PATIENT
  Age: 63 Year
  Sex: Female

DRUGS (3)
  1. VELCADE [Suspect]
     Active Substance: BORTEZOMIB
     Indication: Cardiac amyloidosis
     Dosage: UNK
     Route: 065
     Dates: start: 201709
  2. DEXAMETHASONE [Suspect]
     Active Substance: DEXAMETHASONE
     Indication: Cardiac amyloidosis
     Dosage: UNK
     Route: 065
     Dates: start: 201709
  3. MELPHALAN [Suspect]
     Active Substance: MELPHALAN
     Indication: Cardiac amyloidosis
     Dosage: UNK
     Route: 065
     Dates: start: 201709

REACTIONS (3)
  - Arrhythmia [Fatal]
  - Drug ineffective for unapproved indication [Fatal]
  - Off label use [Fatal]
